FAERS Safety Report 7489452-0 (Version None)
Quarter: 2011Q2

REPORT INFORMATION
  Report Type: 
  Country: None (occurrence: None)
  Receive Date: 20110518
  Receipt Date: 20110511
  Transmission Date: 20111010
  Serious: Yes (Other)
  Sender: FDA-Public Use
  Company Number: US-US-EMD SERONO, INC.-7001170

PATIENT
  Sex: Male

DRUGS (6)
  1. REBIF [Suspect]
     Indication: MULTIPLE SCLEROSIS
     Route: 058
     Dates: start: 20100226, end: 20100301
  2. WELLBUTRIN [Concomitant]
     Indication: DEPRESSION
     Dates: start: 20080101
  3. REBIF [Suspect]
     Route: 058
     Dates: start: 20100101, end: 20100101
  4. REBIF [Suspect]
     Route: 058
     Dates: start: 20100401, end: 20100401
  5. REBIF [Suspect]
     Route: 058
     Dates: start: 20100401
  6. PROVIGIL [Suspect]
     Indication: FATIGUE
     Dates: start: 20080101, end: 20100401

REACTIONS (4)
  - SUICIDAL IDEATION [None]
  - DEPRESSION [None]
  - FATIGUE [None]
  - SOMNOLENCE [None]
